FAERS Safety Report 4282567-X (Version None)
Quarter: 2004Q1

REPORT INFORMATION
  Report Type: 
  Country: None (occurrence: None)
  Receive Date: 20040129
  Receipt Date: 20040116
  Transmission Date: 20041129
  Serious: Yes (Death)
  Sender: FDA-Public Use
  Company Number: US-JNJFOC-20040103202

PATIENT
  Age: 76 Year
  Sex: Male

DRUGS (10)
  1. INFLIXIMAB (INFLIXIMAB, RECOMBINANT) LYOPHILIZED POWDER [Suspect]
     Indication: RHEUMATOID ARTHRITIS
     Dosage: INTRAVENOUS
     Route: 042
     Dates: start: 20011015
  2. METHOTREXATE [Concomitant]
  3. FOLIC ACID [Concomitant]
  4. PREDNISONE [Concomitant]
  5. ALEVE [Concomitant]
  6. TYLOX [Concomitant]
  7. CITRACAL (CALCIUM CITRATE) [Concomitant]
  8. MULTIVITAMIN (MULTIVITAMINS) [Concomitant]
  9. MUSCLE RELAXER (MUSCLE RELAXANTS) [Concomitant]
  10. ANXIETY MEDICATION (ANXIOLYTICS) [Concomitant]

REACTIONS (1)
  - DEATH [None]
